FAERS Safety Report 7197934-4 (Version None)
Quarter: 2010Q4

REPORT INFORMATION
  Report Type: 
  Country: None (occurrence: None)
  Receive Date: 20101227
  Receipt Date: 20101215
  Transmission Date: 20110411
  Serious: Yes (Other)
  Sender: FDA-Public Use
  Company Number: JP-ROCHE-740918

PATIENT
  Age: 66 Year
  Sex: Male

DRUGS (3)
  1. AVASTIN [Suspect]
     Indication: RECTAL CANCER METASTATIC
     Dosage: DOSAGE IS UNCERTAIN.
     Route: 041
  2. AVASTIN [Suspect]
     Indication: RECTAL CANCER METASTATIC
     Dosage: DOSAGE IS UNCERTAIN.
     Route: 048
  3. ELPLAT [Concomitant]
     Dosage: DOSAGE IS UNCERTAIN.
     Route: 041

REACTIONS (5)
  - CATHETER SITE HAEMORRHAGE [None]
  - PELVIC ABSCESS [None]
  - PERIPHERAL ARTERY ANEURYSM [None]
  - SHOCK [None]
  - SHOCK HAEMORRHAGIC [None]
